FAERS Safety Report 11021252 (Version 1)
Quarter: 2015Q2

REPORT INFORMATION
  Report Type: Spontaneous
  Country: IT (occurrence: IT)
  Receive Date: 20150413
  Receipt Date: 20150413
  Transmission Date: 20150821
  Serious: Yes (Hospitalization)
  Sender: FDA-Public Use
  Company Number: IT-TEVA-554103ISR

PATIENT
  Age: 64 Year
  Sex: Male

DRUGS (11)
  1. CARDIOASPIRIN 100 MG [Concomitant]
     Active Substance: ASPIRIN
     Route: 048
  2. EUTIROX 125 MCG [Concomitant]
     Route: 048
  3. LANTUS 100 IU/ML [Concomitant]
     Route: 058
  4. AMOXICILLIN TRIHYDRATE [Suspect]
     Active Substance: AMOXICILLIN
     Dosage: 3 GRAM DAILY;
     Route: 048
     Dates: start: 20141228, end: 20150104
  5. MONOKET 60 MG [Concomitant]
     Route: 048
  6. DIAMICON 80 MG [Concomitant]
     Route: 048
  7. PLAVIX [Concomitant]
     Active Substance: CLOPIDOGREL BISULFATE
     Route: 048
  8. BISOPROLOLO EMIFUMARATO [Concomitant]
     Active Substance: BISOPROLOL FUMARATE
     Route: 048
  9. PANTOPRAZOLO SODICO SESQUIIDRATO [Concomitant]
     Route: 048
  10. RANOLAZINA [Concomitant]
     Route: 048
  11. TORVAST 40 MG [Concomitant]
     Route: 048

REACTIONS (2)
  - Pneumonitis [Recovering/Resolving]
  - Drug ineffective [Recovering/Resolving]

NARRATIVE: CASE EVENT DATE: 20150104
